FAERS Safety Report 12319246 (Version 1)
Quarter: 2016Q2

REPORT INFORMATION
  Report Type: Spontaneous
  Country: US (occurrence: US)
  Receive Date: 20160429
  Receipt Date: 20160429
  Transmission Date: 20160815
  Serious: No
  Sender: FDA-Public Use
  Company Number: US-ROCHE-1634223

PATIENT
  Age: 80 Year
  Sex: Female
  Weight: 51.76 kg

DRUGS (1)
  1. ESBRIET [Suspect]
     Active Substance: PIRFENIDONE
     Indication: IDIOPATHIC PULMONARY FIBROSIS
     Route: 048
     Dates: start: 20150224

REACTIONS (8)
  - Dysphonia [Unknown]
  - Weight decreased [Unknown]
  - Fatigue [Unknown]
  - Dry mouth [Unknown]
  - Anxiety [Unknown]
  - Nasopharyngitis [Unknown]
  - Lip dry [Unknown]
  - Lip swelling [Unknown]

NARRATIVE: CASE EVENT DATE: 201512
